FAERS Safety Report 9439387 (Version 1)
Quarter: 2013Q3

REPORT INFORMATION
  Report Type: Spontaneous
  Country: FR (occurrence: FR)
  Receive Date: 20130805
  Receipt Date: 20130805
  Transmission Date: 20140515
  Serious: Yes (Hospitalization, Other)
  Sender: FDA-Public Use
  Company Number: FR-BIOGENIDEC-2013BI061211

PATIENT
  Age: 40 Year
  Sex: Female
  Weight: 80 kg

DRUGS (5)
  1. AVONEX [Suspect]
     Indication: MULTIPLE SCLEROSIS
     Route: 030
     Dates: start: 20050316, end: 20120617
  2. AVONEX [Suspect]
     Indication: MULTIPLE SCLEROSIS
     Route: 030
     Dates: start: 20120806, end: 20120817
  3. EFFEXOR [Concomitant]
     Indication: DEPRESSION
     Dates: start: 201010, end: 201206
  4. HYTACAND [Concomitant]
     Indication: HYPERTENSION
     Dates: start: 2007
  5. XATRAL [Concomitant]
     Indication: BLADDER DISORDER
     Dates: start: 2010

REACTIONS (1)
  - Drug-induced liver injury [Recovered/Resolved]
